FAERS Safety Report 24160245 (Version 1)
Quarter: 2024Q3

REPORT INFORMATION
  Report Type: Spontaneous
  Country: US (occurrence: US)
  Receive Date: 20240801
  Receipt Date: 20240801
  Transmission Date: 20241017
  Serious: No
  Sender: AILEX PHARMACEUTICALS
  Company Number: AP-2024-US-6001

PATIENT
  Age: 67 Year
  Sex: Female

DRUGS (5)
  1. CROMOLYN SODIUM [Suspect]
     Active Substance: CROMOLYN SODIUM
     Indication: Mast cell activation syndrome
     Dosage: 200 MG, QD
     Route: 048
     Dates: start: 20240622, end: 20240623
  2. BENADRYL [Concomitant]
     Active Substance: DIPHENHYDRAMINE HYDROCHLORIDE
     Indication: Mast cell activation syndrome
     Dosage: 25 MG, EVERY 4-6 HOURS AS NEEDED
     Route: 048
  3. FAMOTIDINE [Concomitant]
     Active Substance: FAMOTIDINE
     Indication: Mast cell activation syndrome
     Dosage: 80 MG, QD
     Route: 048
  4. ALBUTEROL [Concomitant]
     Active Substance: ALBUTEROL
     Indication: Mast cell activation syndrome
     Dosage: AS NEEDED
     Route: 055
  5. XOLAIR [Concomitant]
     Active Substance: OMALIZUMAB
     Indication: Mast cell activation syndrome
     Route: 058

REACTIONS (9)
  - Hypersensitivity [Recovered/Resolved]
  - Dysphonia [Recovered/Resolved]
  - Throat irritation [Recovered/Resolved]
  - Flushing [Recovered/Resolved]
  - Lip swelling [Recovered/Resolved]
  - Muscle twitching [Recovered/Resolved]
  - Urticaria [Recovered/Resolved]
  - Wheezing [Recovered/Resolved]
  - Dizziness [Recovered/Resolved]

NARRATIVE: CASE EVENT DATE: 20240601
